FAERS Safety Report 6768848-6 (Version None)
Quarter: 2010Q2

REPORT INFORMATION
  Report Type: 
  Country: None (occurrence: None)
  Receive Date: 20100611
  Receipt Date: 20100526
  Transmission Date: 20101027
  Serious: Yes (Hospitalization, Other)
  Sender: FDA-Public Use
  Company Number: MCN015022/AE2010-104

PATIENT
  Age: 42 Year
  Sex: Female

DRUGS (9)
  1. PRIALT [Suspect]
     Indication: POST LAMINECTOMY SYNDROME
     Dosage: 1.2 MCG - 9 MCG DAILY;
     Dates: start: 20090629
  2. ... [Concomitant]
  3. HYDROMORPHONE [Concomitant]
  4. DULOXETINE [Concomitant]
  5. PREGABALIN [Concomitant]
  6. FLUPRITINE [Concomitant]
  7. ETORICOXIB [Concomitant]
  8. MORPHINE [Concomitant]
  9. ISOPROMETHAZINE [Concomitant]

REACTIONS (6)
  - BALANCE DISORDER [None]
  - DYSKINESIA [None]
  - FEELING COLD [None]
  - HYPERHIDROSIS [None]
  - MEMORY IMPAIRMENT [None]
  - SPEECH DISORDER [None]
